FAERS Safety Report 4882336-3 (Version None)
Quarter: 2005Q4

REPORT INFORMATION
  Report Type: 
  Country: None (occurrence: None)
  Receive Date: 20051223
  Receipt Date: 20050919
  Transmission Date: 20060501
  Serious: No
  Sender: FDA-Public Use
  Company Number: 05P-163-0310476-00

PATIENT
  Age: 72 Year
  Sex: Female
  Weight: 54.4316 kg

DRUGS (9)
  1. HUMIRA [Suspect]
     Indication: RHEUMATOID ARTHRITIS
     Dosage: 40 MG, 1 IN 2 WK, SUBCUTANEOUS
     Route: 058
     Dates: start: 20050501
  2. VILIZEM [Concomitant]
  3. STIRONDATONE [Concomitant]
  4. ISOSORBIDE DINITRATE [Concomitant]
  5. FUROSEMIDE [Concomitant]
  6. MINITRIN [Concomitant]
  7. LATANOPROST [Concomitant]
  8. LEVOTHYROXINE SODIUM [Concomitant]
  9. PREDNISONE [Concomitant]

REACTIONS (2)
  - DRUG INEFFECTIVE [None]
  - PAIN [None]
